FAERS Safety Report 21763190 (Version 1)
Quarter: 2022Q4

REPORT INFORMATION
  Report Type: Spontaneous
  Country: US (occurrence: US)
  Receive Date: 20221221
  Receipt Date: 20221221
  Transmission Date: 20230113
  Serious: No
  Sender: FDA-Public Use
  Company Number: US-LUNDBECK-DKLU3055552

PATIENT
  Age: 31 Year
  Sex: Female

DRUGS (4)
  1. SABRIL [Suspect]
     Active Substance: VIGABATRIN
     Indication: Epilepsy
     Route: 048
     Dates: start: 201607
  2. SABRIL [Suspect]
     Active Substance: VIGABATRIN
     Indication: Partial seizures
  3. SABRIL [Suspect]
     Active Substance: VIGABATRIN
     Indication: Focal dyscognitive seizures
  4. SABRIL [Suspect]
     Active Substance: VIGABATRIN
     Indication: Status epilepticus

REACTIONS (1)
  - Cough [Unknown]
